FAERS Safety Report 13895827 (Version 1)
Quarter: 2017Q3

REPORT INFORMATION
  Report Type: Spontaneous
  Country: US (occurrence: None)
  Receive Date: 20170822
  Receipt Date: 20170822
  Transmission Date: 20171127
  Serious: Yes (Hospitalization)
  Sender: FDA-Public Use
  Company Number: None

PATIENT
  Age: 78 Year
  Sex: Male

DRUGS (1)
  1. XTANDI [Suspect]
     Active Substance: ENZALUTAMIDE
     Indication: PROSTATE CANCER
     Dosage: 4 CAPSULES DAILY BY MOUTH
     Route: 048
     Dates: start: 20170626, end: 20170815

REACTIONS (6)
  - Urinary tract infection [None]
  - Feeding disorder [None]
  - Dehydration [None]
  - Insomnia [None]
  - Asthenia [None]
  - Diarrhoea [None]

NARRATIVE: CASE EVENT DATE: 20170801
